FAERS Safety Report 4597660-1 (Version None)
Quarter: 2005Q1

REPORT INFORMATION
  Report Type: 
  Country: None (occurrence: None)
  Receive Date: 20050303
  Receipt Date: 20050224
  Transmission Date: 20050727
  Serious: Yes (Other)
  Sender: FDA-Public Use
  Company Number: GB-GLAXOSMITHKLINE-B0372926A

PATIENT
  Sex: Male
  Weight: 89 kg

DRUGS (1)
  1. PAROXETINE [Suspect]
     Indication: PANIC ATTACK
     Dosage: 15MG PER DAY
     Route: 048
     Dates: start: 20010701, end: 20011201

REACTIONS (4)
  - AGGRESSION [None]
  - AGITATION [None]
  - BALANCE DISORDER [None]
  - SUICIDAL IDEATION [None]
